FAERS Safety Report 10739412 (Version 1)
Quarter: 2015Q1

REPORT INFORMATION
  Report Type: Spontaneous
  Country: US (occurrence: US)
  Receive Date: 20150126
  Receipt Date: 20150126
  Transmission Date: 20150721
  Serious: No
  Sender: FDA-Public Use
  Company Number: US-GLAXOSMITHKLINE-US2014045000

PATIENT
  Age: 25 Year
  Sex: Male

DRUGS (2)
  1. NICORETTE FRUIT CHILL [Suspect]
     Active Substance: NICOTINE
     Indication: PRODUCT USED FOR UNKNOWN INDICATION
     Route: 002
  2. NICORETTE FRUIT CHILL [Suspect]
     Active Substance: NICOTINE

REACTIONS (1)
  - Malaise [Unknown]
